FAERS Safety Report 22075058 (Version 1)
Quarter: 2023Q1

REPORT INFORMATION
  Report Type: Spontaneous
  Country: US (occurrence: US)
  Receive Date: 20230308
  Receipt Date: 20230308
  Transmission Date: 20230417
  Serious: No
  Sender: FDA-Public Use
  Company Number: US-ALLERGAN-2303518US

PATIENT
  Sex: Male
  Weight: 79.38 kg

DRUGS (3)
  1. MESALAMINE [Suspect]
     Active Substance: MESALAMINE
     Indication: Proctitis ulcerative
     Dosage: ONCE EVERY DAY
     Route: 054
  2. APRISO [Concomitant]
     Active Substance: MESALAMINE
     Route: 048
  3. LIALDA [Concomitant]
     Active Substance: MESALAMINE
     Dosage: 4000 MG
     Route: 048

REACTIONS (3)
  - Poor quality product administered [Unknown]
  - Product colour issue [Unknown]
  - Product physical consistency issue [Unknown]
